FAERS Safety Report 7970031-3 (Version None)
Quarter: 2011Q4

REPORT INFORMATION
  Report Type: 
  Country: None (occurrence: None)
  Receive Date: 20111212
  Receipt Date: 20111202
  Transmission Date: 20120403
  Serious: Yes (Hospitalization)
  Sender: FDA-Public Use
  Company Number: IE-JNJFOC-20110610453

PATIENT
  Sex: Male
  Weight: 63 kg

DRUGS (7)
  1. DOMPERIDONE [Concomitant]
     Indication: NAUSEA
     Route: 048
  2. TRAMADOL HCL [Concomitant]
     Indication: PAIN
     Route: 048
  3. ABIRATERONE ACETATE [Suspect]
     Indication: PROSTATE CANCER METASTATIC
     Route: 048
     Dates: start: 20110607, end: 20110620
  4. MORPHINE [Concomitant]
     Indication: PAIN
     Route: 048
  5. LANSOPRAZOLE [Concomitant]
     Indication: NAUSEA
     Route: 048
  6. ABIRATERONE ACETATE [Suspect]
     Route: 048
  7. RAMIPRIL [Concomitant]
     Indication: BLOOD PRESSURE
     Route: 048

REACTIONS (1)
  - CONFUSIONAL STATE [None]
